FAERS Safety Report 8961587 (Version 1)
Quarter: 2012Q4

REPORT INFORMATION
  Report Type: 
  Country: US (occurrence: US)
  Receive Date: 20121213
  Receipt Date: 20121213
  Transmission Date: 20130627
  Serious: No
  Sender: FDA-Public Use
  Company Number: US-ALLERGAN-1215992US

PATIENT
  Age: 58 Year
  Sex: Female

DRUGS (8)
  1. LUMIGAN� 0.01% [Suspect]
     Indication: OCULAR HYPERTENSION
     Dosage: 2 Gtt, UNK
     Route: 047
     Dates: start: 20120703
  2. OLANZAPINE [Concomitant]
     Indication: DEPRESSION
     Dosage: UNK
  3. SERTRALINE [Concomitant]
     Indication: DEPRESSION
     Dosage: UNK
  4. LAMOTRIGINE [Concomitant]
     Indication: DRUG USE FOR UNKNOWN INDICATION
     Dosage: UNK
  5. SIMVASTATIN [Concomitant]
     Indication: HIGH CHOLESTEROL
  6. OMEPRAZOLE [Concomitant]
     Indication: GERD
     Dosage: UNK
  7. BABT ASA [Concomitant]
     Indication: DRUG USE FOR UNKNOWN INDICATION
     Dosage: UNK
  8. THYROID MEDICATION [Concomitant]
     Indication: HYPOTHYROIDISM
     Dosage: UNK

REACTIONS (3)
  - Dry eye [Unknown]
  - Ocular hyperaemia [Unknown]
  - Eye irritation [Unknown]
